FAERS Safety Report 9380041 (Version 2)
Quarter: 2013Q3

REPORT INFORMATION
  Report Type: Spontaneous
  Country: US (occurrence: US)
  Receive Date: 20130702
  Receipt Date: 20130823
  Transmission Date: 20140515
  Serious: No
  Sender: FDA-Public Use
  Company Number: US-PFIZER INC-2013194172

PATIENT
  Age: 54 Year
  Sex: Male
  Weight: 112 kg

DRUGS (6)
  1. VIAGRA [Suspect]
     Indication: ERECTILE DYSFUNCTION
     Dosage: 25 MG, DAILY AS NEEDED
     Route: 048
     Dates: start: 20130611
  2. VIAGRA [Suspect]
     Dosage: 25 MG, 1X/DAY
     Dates: start: 20130621
  3. VIAGRA [Suspect]
     Dosage: 50 MG, UNK
     Dates: start: 20130622
  4. VIAGRA [Suspect]
     Dosage: 75 MG (50MG INITIALLY AND 25MG LATER IN THE DAY)
     Dates: start: 20130626
  5. AMLODIPINE [Concomitant]
     Indication: HYPERTENSION
     Dosage: 10 MG, 1X/DAY
     Dates: start: 20130611
  6. CRESTOR [Concomitant]
     Indication: BLOOD CHOLESTEROL INCREASED
     Dosage: 10 MG, 1X/DAY
     Dates: start: 20130612

REACTIONS (2)
  - Circumstance or information capable of leading to medication error [Unknown]
  - Drug ineffective [Unknown]
